FAERS Safety Report 6499007-2 (Version None)
Quarter: 2009Q4

REPORT INFORMATION
  Report Type: 
  Country: None (occurrence: None)
  Receive Date: 20091215
  Receipt Date: 20091130
  Transmission Date: 20100525
  Serious: Yes (Hospitalization)
  Sender: FDA-Public Use
  Company Number: FR-GENENTECH-295714

PATIENT
  Sex: Female

DRUGS (4)
  1. LUCENTIS [Suspect]
     Indication: MACULAR DEGENERATION
     Dosage: UNK
     Route: 031
     Dates: start: 20090625
  2. COVERSYL [Concomitant]
     Indication: DRUG USE FOR UNKNOWN INDICATION
  3. LIPANTHYL [Concomitant]
     Indication: DRUG USE FOR UNKNOWN INDICATION
  4. VASTAREL [Concomitant]
     Indication: DRUG USE FOR UNKNOWN INDICATION

REACTIONS (3)
  - GUILLAIN-BARRE SYNDROME [None]
  - INAPPROPRIATE SCHEDULE OF DRUG ADMINISTRATION [None]
  - POLYNEUROPATHY [None]
